FAERS Safety Report 7212732-0 (Version None)
Quarter: 2011Q1

REPORT INFORMATION
  Report Type: 
  Country: None (occurrence: None)
  Receive Date: 20110106
  Receipt Date: 20101228
  Transmission Date: 20110831
  Serious: Yes (Death, Hospitalization)
  Sender: FDA-Public Use
  Company Number: US-JNJFOC-20051102786

PATIENT
  Sex: Male
  Weight: 34.4 kg

DRUGS (36)
  1. CAPTOPRIL [Concomitant]
     Route: 048
  2. RISPERDAL [Suspect]
     Dosage: 0.5 MG AM, MID-DAY, AND 2 MG HS DAILY
     Route: 048
  3. RISPERDAL [Suspect]
     Route: 048
  4. RISPERDAL [Suspect]
     Dosage: 0.5 MG AM, MID-DAY, AND 2 MG HS DAILY
     Route: 048
  5. RISPERDAL [Suspect]
     Route: 048
  6. ABILIFY [Suspect]
     Dates: start: 20010809, end: 20030601
  7. ADDERALL 10 [Concomitant]
     Indication: ATTENTION DEFICIT/HYPERACTIVITY DISORDER
     Dosage: 10 MG EVERY AM, 5 MG EVERY MID-DAY
     Route: 048
  8. RISPERDAL [Suspect]
     Route: 048
  9. RISPERDAL [Suspect]
     Dosage: 0.5 MG AM AND 1 MG HS DAILY
     Route: 048
  10. ABILIFY [Suspect]
     Dates: start: 20010809, end: 20030601
  11. SEROQUEL [Suspect]
     Indication: PRODUCT USED FOR UNKNOWN INDICATION
  12. SEROQUEL [Suspect]
     Dosage: TITRATED TO 50 MG TID AND 150 MG HS DAILY
  13. RISPERDAL [Suspect]
     Indication: ATTENTION DEFICIT/HYPERACTIVITY DISORDER
     Dosage: 0.5 MG AM AND 2 MG HS DAILY
     Route: 048
  14. PROZAC [Concomitant]
     Route: 048
  15. PROZAC [Concomitant]
     Route: 048
  16. ADDERALL 10 [Concomitant]
     Route: 048
  17. ADDERALL 10 [Concomitant]
     Route: 048
  18. ALTACE [Concomitant]
     Route: 048
  19. RISPERDAL [Suspect]
     Dosage: 0.5 MG AM, MID-DAY, AND 2 MG HS DAILY
     Route: 048
  20. RISPERDAL [Suspect]
     Dosage: 0.5 MG AM AND 1 MG HS DAILY
     Route: 048
  21. RISPERDAL [Suspect]
     Dosage: 1 MG AM, MID-DAY, AND 2 MG HS DAILY
     Route: 048
  22. RISPERDAL [Suspect]
     Dosage: 0.5 MG AM AND 2 MG HS DAILY
     Route: 048
  23. ABILIFY [Suspect]
     Indication: PRODUCT USED FOR UNKNOWN INDICATION
     Dates: start: 20010809, end: 20030601
  24. RISPERDAL [Suspect]
     Dosage: INITIALLY STARTED AT 0.5 MG EVERY 4 HOURS PRN, 1 MG DAILY TITRATED UPWARD TO 1.5 MG AM AND 2 MG HS
     Route: 048
  25. RISPERDAL [Suspect]
     Dosage: 1 MG AM, MID-DAY, AND 2 MG HS DAILY
     Route: 048
  26. RISPERDAL [Suspect]
     Dosage: 1 MG AM, MID-DAY, AND 2 MG HS DAILY
     Route: 048
  27. RISPERDAL [Suspect]
     Dosage: INITIALLY STARTED AT 0.5 MG EVERY 4 HOURS PRN, 1 MG DAILY TITRATED UPWARD TO 1.5 MG AM AND 2 MG HS
     Route: 048
  28. RISPERDAL [Suspect]
     Indication: AGGRESSION
     Dosage: INITIALLY STARTED AT 0.5 MG EVERY 4 HOURS PRN, 1 MG DAILY TITRATED UPWARD TO 1.5 MG AM AND 2 MG HS
     Route: 048
  29. PROZAC [Concomitant]
     Route: 048
  30. RISPERDAL [Suspect]
     Indication: AUTISM SPECTRUM DISORDER
     Route: 048
  31. RISPERDAL [Suspect]
     Dosage: 0.5 MG AM AND 2 MG HS DAILY
     Route: 048
  32. RISPERDAL [Suspect]
     Dosage: 0.5 MG AM AND 1 MG HS DAILY
     Route: 048
  33. EFFEXOR [Concomitant]
     Dosage: X 1 WEEK
  34. EFFEXOR [Concomitant]
  35. RISPERDAL [Suspect]
     Route: 048
  36. RISPERDAL [Suspect]
     Route: 048

REACTIONS (10)
  - SOMNOLENCE [None]
  - PROTRUSION TONGUE [None]
  - MULTI-ORGAN FAILURE [None]
  - PSYCHOMOTOR HYPERACTIVITY [None]
  - COMPULSIONS [None]
  - CARDIOPULMONARY FAILURE [None]
  - BITE [None]
  - OFF LABEL USE [None]
  - HYPERGLYCAEMIA [None]
  - THIRST [None]
